FAERS Safety Report 7636056-2 (Version None)
Quarter: 2011Q3

REPORT INFORMATION
  Report Type: 
  Country: None (occurrence: None)
  Receive Date: 20110726
  Receipt Date: 20110721
  Transmission Date: 20111222
  Serious: Yes (Disabling, Other)
  Sender: FDA-Public Use
  Company Number: US-PFIZER INC-2011166154

PATIENT
  Sex: Male

DRUGS (2)
  1. LIPITOR [Suspect]
     Indication: BLOOD CHOLESTEROL INCREASED
     Dosage: 20 MG, DAILY
     Dates: start: 20110201, end: 20110613
  2. TRAMADOL HYDROCHLORIDE [Suspect]
     Indication: ARTHRALGIA
     Dosage: 50 MG, 2X/DAY

REACTIONS (10)
  - ARTHRALGIA [None]
  - MYALGIA [None]
  - INCISION SITE PAIN [None]
  - MUSCULAR WEAKNESS [None]
  - FALL [None]
  - PAIN IN EXTREMITY [None]
  - GAIT DISTURBANCE [None]
  - OEDEMA PERIPHERAL [None]
  - WRIST SURGERY [None]
  - WEIGHT DECREASED [None]
